FAERS Safety Report 4505779-6 (Version None)
Quarter: 2004Q4

REPORT INFORMATION
  Report Type: 
  Country: None (occurrence: None)
  Receive Date: 20041025
  Receipt Date: 20031215
  Transmission Date: 20050328
  Serious: Yes (Death, Other)
  Sender: FDA-Public Use
  Company Number: US-JNJFOC-20031203206

PATIENT
  Sex: Male

DRUGS (1)
  1. REMICADE [Suspect]
     Indication: RHEUMATOID ARTHRITIS
     Dosage: RECEIVED APPROXIMATELY 4 INFUSIONS
     Dates: start: 20010101

REACTIONS (3)
  - CARDIAC FAILURE CONGESTIVE [None]
  - INFECTION [None]
  - PULMONARY OEDEMA [None]
